FAERS Safety Report 8076393-3 (Version None)
Quarter: 2012Q1

REPORT INFORMATION
  Report Type: 
  Country: None (occurrence: None)
  Receive Date: 20120127
  Receipt Date: 20120127
  Transmission Date: 20120608
  Serious: Yes (Disabling, Other)
  Sender: FDA-Public Use
  Company Number: None

PATIENT
  Age: 49 Year
  Sex: Female
  Weight: 72.574 kg

DRUGS (1)
  1. LEVOFLOXACIN [Suspect]
     Indication: SINUSITIS
     Dosage: 1 TAB/500MG
     Route: 048
     Dates: start: 20111214, end: 20111218

REACTIONS (7)
  - BACK PAIN [None]
  - NECK PAIN [None]
  - TENDONITIS [None]
  - FATIGUE [None]
  - MUSCULAR WEAKNESS [None]
  - ARTHRALGIA [None]
  - ARTHROPATHY [None]
